FAERS Safety Report 20422796 (Version 3)
Quarter: 2022Q3

REPORT INFORMATION
  Report Type: Report from Study
  Country: CN (occurrence: None)
  Receive Date: 20220203
  Receipt Date: 20220728
  Transmission Date: 20221026
  Serious: Yes (Hospitalization)
  Sender: FDA-Public Use
  Company Number: 2022A038708

PATIENT
  Age: 25032 Day
  Sex: Male

DRUGS (27)
  1. DURVALUMAB [Suspect]
     Active Substance: DURVALUMAB
     Indication: Non-small cell lung cancer
     Route: 042
     Dates: start: 20211213, end: 20211213
  2. DURVALUMAB [Suspect]
     Active Substance: DURVALUMAB
     Indication: Non-small cell lung cancer
     Route: 042
     Dates: start: 20220111, end: 20220111
  3. DURVALUMAB [Suspect]
     Active Substance: DURVALUMAB
     Indication: Non-small cell lung cancer
     Route: 042
     Dates: start: 20220224, end: 20220224
  4. DURVALUMAB [Suspect]
     Active Substance: DURVALUMAB
     Indication: Non-small cell lung cancer
     Route: 042
     Dates: start: 20220419, end: 20220419
  5. TREMELIMUMAB [Suspect]
     Active Substance: TREMELIMUMAB
     Indication: Non-small cell lung cancer
     Route: 042
     Dates: start: 20211213, end: 20211213
  6. TREMELIMUMAB [Suspect]
     Active Substance: TREMELIMUMAB
     Indication: Non-small cell lung cancer
     Route: 042
     Dates: start: 20220111, end: 20220111
  7. TREMELIMUMAB [Suspect]
     Active Substance: TREMELIMUMAB
     Indication: Non-small cell lung cancer
     Route: 042
     Dates: start: 20220224, end: 20220224
  8. TREMELIMUMAB [Suspect]
     Active Substance: TREMELIMUMAB
     Indication: Non-small cell lung cancer
     Route: 042
     Dates: start: 20220419, end: 20220419
  9. PEMETREXED [Suspect]
     Active Substance: PEMETREXED
     Indication: Non-small cell lung cancer
     Route: 042
     Dates: start: 20211213, end: 20211213
  10. PEMETREXED [Suspect]
     Active Substance: PEMETREXED
     Indication: Non-small cell lung cancer
     Route: 042
     Dates: start: 20220111, end: 20220111
  11. PEMETREXED [Suspect]
     Active Substance: PEMETREXED
     Indication: Non-small cell lung cancer
     Route: 042
     Dates: start: 20220224, end: 20220224
  12. CARBOPLATIN [Suspect]
     Active Substance: CARBOPLATIN
     Indication: Non-small cell lung cancer
     Dosage: 5.0 AUC EVERY THREE WEEKS
     Route: 042
     Dates: start: 20211213, end: 20211213
  13. CARBOPLATIN [Suspect]
     Active Substance: CARBOPLATIN
     Indication: Non-small cell lung cancer
     Dosage: 5.0 AUC EVERY THREE WEEKS
     Route: 042
     Dates: start: 20220111, end: 20220111
  14. CARBOPLATIN [Suspect]
     Active Substance: CARBOPLATIN
     Indication: Non-small cell lung cancer
     Dosage: 4.0 AUC EVERY THREE WEEKS
     Route: 042
     Dates: start: 20220224, end: 20220224
  15. OMEPRAZOLE ENTERIC-COATED TABLETS [Concomitant]
     Indication: Gastric disorder
     Route: 048
     Dates: start: 20211214, end: 20211221
  16. BICYCLOL TABLETS [Concomitant]
     Indication: Liver transplant rejection
     Route: 048
     Dates: start: 20211212, end: 20211224
  17. DICLOFENAC SODIUM SUPPOSITORY [Concomitant]
     Indication: Pain
     Dosage: 50.0MG AS REQUIRED
     Route: 054
     Dates: start: 20211213
  18. OXYCODONE AND ACETAMINOPHEN [Concomitant]
     Active Substance: ACETAMINOPHEN\OXYCODONE HYDROCHLORIDE
     Indication: Pain
     Dosage: 5.0MG AS REQUIRED
     Route: 048
     Dates: start: 20211213
  19. AMINO ACIDS, SOURCE UNSPECIFIED [Concomitant]
     Active Substance: AMINO ACIDS, SOURCE UNSPECIFIED
     Indication: Asthenia
     Route: 042
     Dates: start: 20211225, end: 20211228
  20. SHENQI FUZHENG ZHUSHEYE [Concomitant]
     Indication: Asthenia
     Route: 042
     Dates: start: 20211225, end: 20211228
  21. ESOMEPRAZOLE SODIUM [Concomitant]
     Active Substance: ESOMEPRAZOLE SODIUM
     Indication: Gastric disorder
     Route: 042
     Dates: start: 20211225, end: 20211226
  22. RECOMBINANT HUMAN THROMBOPOIETIN INJECTION [Concomitant]
     Indication: Plateletcrit
     Route: 058
     Dates: start: 20211225, end: 20211228
  23. RABEPRAZOLE SODIUM [Concomitant]
     Active Substance: RABEPRAZOLE SODIUM
     Indication: Gastric disorder
     Route: 042
     Dates: start: 20211226, end: 20211228
  24. MEDROXYPROGESTERO NE [Concomitant]
     Indication: Increased appetite
     Route: 048
     Dates: start: 20211225, end: 20211228
  25. ANISODAMINE [Concomitant]
     Active Substance: ANISODAMINE
     Indication: Pain
     Route: 030
     Dates: start: 20211225, end: 20211225
  26. DEXAMETHASONE TABLETS [Concomitant]
     Indication: Hypersensitivity
     Route: 048
     Dates: start: 20211212, end: 20211214
  27. DEXAMETHASONE TABLETS [Concomitant]
     Indication: Hypersensitivity
     Route: 048
     Dates: start: 20211224, end: 20211227

REACTIONS (2)
  - Platelet count decreased [Recovered/Resolved]
  - Abdominal pain [Recovered/Resolved]

NARRATIVE: CASE EVENT DATE: 20220118
